FAERS Safety Report 10091921 (Version 2)
Quarter: 2014Q2

REPORT INFORMATION
  Report Type: Spontaneous
  Country: US (occurrence: US)
  Receive Date: 20140421
  Receipt Date: 20140421
  Transmission Date: 20141212
  Serious: No
  Sender: FDA-Public Use
  Company Number: US-GILEAD-2013-0070053

PATIENT
  Sex: Female

DRUGS (3)
  1. LETAIRIS [Suspect]
     Indication: UNEVALUABLE EVENT
     Dosage: 10 MG, QD
     Dates: start: 20091119
  2. LETAIRIS [Suspect]
     Indication: HEART DISEASE CONGENITAL
  3. REVATIO [Concomitant]

REACTIONS (1)
  - Bronchitis [Unknown]
